FAERS Safety Report 24262675 (Version 1)
Quarter: 2024Q3

REPORT INFORMATION
  Report Type: Spontaneous
  Country: GB (occurrence: GB)
  Receive Date: 20240829
  Receipt Date: 20240829
  Transmission Date: 20241017
  Serious: Yes (Other)
  Sender: CIPLA
  Company Number: GB-MHRA-TPP39199313C18023257YC1723717142919

PATIENT

DRUGS (4)
  1. CETIRIZINE [Suspect]
     Active Substance: CETIRIZINE HYDROCHLORIDE
     Indication: Ill-defined disorder
     Dosage: 1MG/ML ORAL SOLUTION SUGAR FREE
     Route: 065
     Dates: start: 20240726
  2. TRIMETHOPRIM [Concomitant]
     Active Substance: TRIMETHOPRIM
     Indication: Ill-defined disorder
     Dosage: 100 MILLIGRAM, BID (AGE 6 - 11 YEARS:)
     Route: 065
     Dates: start: 20240614, end: 20240617
  3. AMOXICILLIN [Concomitant]
     Active Substance: AMOXICILLIN
     Indication: Ill-defined disorder
     Dosage: 10 MILLILITER, TID
     Route: 065
     Dates: start: 20240702, end: 20240707
  4. PENICILLIN V [Concomitant]
     Active Substance: PENICILLIN V
     Indication: Ill-defined disorder
     Dosage: 5 MILLILITER, QID (1X5ML SPOON 4 TIMES/DAY)
     Route: 065
     Dates: start: 20240726, end: 20240805

REACTIONS (1)
  - Vomiting [Recovered/Resolved]

NARRATIVE: CASE EVENT DATE: 20240726
